APPROVED DRUG PRODUCT: LORABID
Active Ingredient: LORACARBEF
Strength: 400MG
Dosage Form/Route: CAPSULE;ORAL
Application: N050668 | Product #002
Applicant: KING PHARMACEUTICALS INC
Approved: Apr 5, 1996 | RLD: No | RS: No | Type: DISCN